FAERS Safety Report 8900410 (Version 3)
Quarter: 2012Q4

REPORT INFORMATION
  Report Type: 
  Country: US (occurrence: US)
  Receive Date: 20121109
  Receipt Date: 20121130
  Transmission Date: 20130627
  Serious: Yes (Other)
  Sender: FDA-Public Use
  Company Number: US-JNJFOC-20121102713

PATIENT
  Sex: Male
  Weight: 133.81 kg

DRUGS (2)
  1. STELARA [Suspect]
     Indication: PSORIASIS
     Route: 058
     Dates: start: 201009, end: 201108
  2. STELARA [Suspect]
     Indication: PSORIASIS
     Route: 058
     Dates: start: 20120330

REACTIONS (4)
  - Hypercholesterolaemia [Unknown]
  - Blood creatinine increased [Unknown]
  - Anaemia [Unknown]
  - Drug dose omission [Unknown]
